FAERS Safety Report 12602162 (Version 1)
Quarter: 2016Q3

REPORT INFORMATION
  Report Type: Spontaneous
  Country: US (occurrence: None)
  Receive Date: 20160727
  Receipt Date: 20160727
  Transmission Date: 20161109
  Serious: No
  Sender: FDA-Public Use
  Company Number: None

PATIENT
  Age: 64 Year
  Sex: Male
  Weight: 119.5 kg

DRUGS (1)
  1. MOXIFLOXACIN. [Suspect]
     Active Substance: MOXIFLOXACIN
     Indication: GLAUCOMA
     Route: 031
     Dates: start: 20160604, end: 20160608

REACTIONS (2)
  - Drug hypersensitivity [None]
  - Choroidal detachment [None]

NARRATIVE: CASE EVENT DATE: 20160609
